FAERS Safety Report 13669271 (Version 2)
Quarter: 2017Q3

REPORT INFORMATION
  Report Type: Spontaneous
  Country: US (occurrence: US)
  Receive Date: 20170620
  Receipt Date: 20170710
  Transmission Date: 20171127
  Serious: Yes (Other)
  Sender: FDA-Public Use
  Company Number: US-AKORN PHARMACEUTICALS-2017AKN00789

PATIENT
  Sex: Female
  Weight: 81.63 kg

DRUGS (9)
  1. PROZAC [Concomitant]
     Active Substance: FLUOXETINE HYDROCHLORIDE
     Dosage: UNK UNK, 1X/DAY
     Route: 048
  2. LUNESTA [Concomitant]
     Active Substance: ESZOPICLONE
     Dosage: 3 MG, 1X/DAY
  3. HYLATOPIC PLUS TOPICAL FOAM [Suspect]
     Active Substance: EMOLLIENTS
     Indication: ACNE
  4. LIPITOR [Suspect]
     Active Substance: ATORVASTATIN CALCIUM
     Route: 048
  5. MYORISAN [Suspect]
     Active Substance: ISOTRETINOIN
     Indication: ACNE
     Dosage: 40 MG, 1X/DAY
     Dates: start: 20170427, end: 20170430
  6. MYORISAN [Suspect]
     Active Substance: ISOTRETINOIN
     Dosage: 40 UNK, EVERY 72 HOURS
     Dates: start: 20170511, end: 20170608
  7. PROPANOLOL [Concomitant]
     Active Substance: PROPRANOLOL HYDROCHLORIDE
     Route: 048
  8. SYNTHROID [Concomitant]
     Active Substance: LEVOTHYROXINE SODIUM
     Dosage: UNK UNK, 1X/DAY
     Route: 048
  9. MULTIVITAMIN [Concomitant]
     Active Substance: VITAMINS
     Dosage: UNK, 1X/DAY

REACTIONS (9)
  - Anxiety [Unknown]
  - Headache [Unknown]
  - Arthralgia [Unknown]
  - Depression [Unknown]
  - Therapeutic response decreased [Unknown]
  - Diarrhoea [Unknown]
  - Lip exfoliation [Unknown]
  - Abdominal pain [Unknown]
  - Lip dry [Unknown]

NARRATIVE: CASE EVENT DATE: 2017
